FAERS Safety Report 13123233 (Version 1)
Quarter: 2017Q1

REPORT INFORMATION
  Report Type: Report from Study
  Country: US (occurrence: US)
  Receive Date: 20170117
  Receipt Date: 20170117
  Transmission Date: 20170428
  Serious: No
  Sender: FDA-Public Use
  Company Number: US-AMGEN-USASP2016161873

PATIENT
  Age: 56 Year
  Sex: Female

DRUGS (2)
  1. CORLANOR [Suspect]
     Active Substance: IVABRADINE HYDROCHLORIDE
     Dosage: 5 MG, BID
     Route: 048
  2. CORLANOR [Suspect]
     Active Substance: IVABRADINE HYDROCHLORIDE
     Indication: SINUS TACHYCARDIA
     Dosage: 5 MG, BID
     Route: 048
     Dates: start: 201609

REACTIONS (4)
  - Off label use [Unknown]
  - Heart rate irregular [Unknown]
  - Palpitations [Unknown]
  - Tachycardia [Unknown]

NARRATIVE: CASE EVENT DATE: 2016
